FAERS Safety Report 26209429 (Version 1)
Quarter: 2025Q4

REPORT INFORMATION
  Report Type: Spontaneous
  Country: EU (occurrence: EU)
  Receive Date: 20251229
  Receipt Date: 20251229
  Transmission Date: 20260118
  Serious: Yes (Hospitalization, Other)
  Sender: CSL BEHRING
  Company Number: EU-BEH-2025229686

PATIENT
  Age: 47 Year
  Sex: Male
  Weight: 76 kg

DRUGS (1)
  1. HEMGENIX [Suspect]
     Active Substance: ETRANACOGENE DEZAPARVOVEC
     Route: 042

REACTIONS (10)
  - Blood pressure decreased [Unknown]
  - Tachycardia [Unknown]
  - Dyspnoea [Unknown]
  - Back pain [Unknown]
  - Hyperhidrosis [Unknown]
  - Hypotension [Recovered/Resolved]
  - Back pain [Recovered/Resolved]
  - Rash [Recovered/Resolved]
  - Malaise [Recovered/Resolved]
  - Therapy interrupted [Unknown]
